FAERS Safety Report 7170573-7 (Version None)
Quarter: 2010Q4

REPORT INFORMATION
  Report Type: 
  Country: None (occurrence: None)
  Receive Date: 20101203
  Receipt Date: 20101119
  Transmission Date: 20110411
  Serious: Yes (Other)
  Sender: FDA-Public Use
  Company Number: DSJ-2010-20797

PATIENT
  Age: 59 Year
  Sex: Female

DRUGS (7)
  1. AMLODIPINE BESYLATE AND OLMESARTAN MEDOXOMIL [Suspect]
     Indication: HYPERTENSION
     Dosage: 40/5 MG (1 IN 1 D) PER ORAL
     Route: 048
     Dates: start: 20101022
  2. AMLODIPINE [Suspect]
     Indication: HYPERTENSION
     Dosage: 5 MG, PER ORAL
     Route: 048
     Dates: start: 20100901, end: 20100901
  3. ROSUVASTATIN [Suspect]
     Indication: HYPERCHOLESTEROLAEMIA
     Dosage: 10 MG, PER ORAL
     Route: 048
     Dates: start: 20101001
  4. SOTALOL HCL [Concomitant]
  5. LEVOTHYROXINE SODIUM [Concomitant]
  6. DEFLAZACORT/AMITRIPTYLINE/CYCLOBENZAPRINE/FAMOTIDINE [Concomitant]
  7. METFORMIN [Concomitant]

REACTIONS (4)
  - DRUG INEFFECTIVE [None]
  - FOOT FRACTURE [None]
  - HYPERCHOLESTEROLAEMIA [None]
  - OEDEMA PERIPHERAL [None]
